FAERS Safety Report 9989928 (Version 2)
Quarter: 2013Q4

REPORT INFORMATION
  Report Type: Spontaneous
  Country: DE (occurrence: None)
  Receive Date: 20131115
  Receipt Date: 20131122
  Transmission Date: 20140711
  Serious: Yes (Hospitalization)
  Sender: FDA-Public Use
  Company Number: DE-MEDIGENE-000453

PATIENT
  Age: 42 Year
  Sex: Female

DRUGS (1)
  1. VEREGEN [Suspect]
     Indication: ANOGENITAL WARTS
     Dosage: ACCORDING TO LEAFLET
     Route: 061
     Dates: start: 20120521, end: 20120605

REACTIONS (5)
  - Application site oedema [None]
  - Vulvovaginal burning sensation [None]
  - Pruritus [None]
  - Erythema [None]
  - Swelling [None]
